FAERS Safety Report 8911794 (Version 8)
Quarter: 2013Q4

REPORT INFORMATION
  Report Type: Spontaneous
  Country: CA (occurrence: CA)
  Receive Date: 20121116
  Receipt Date: 20131120
  Transmission Date: 20140711
  Serious: Yes (Hospitalization, Other)
  Sender: FDA-Public Use
  Company Number: CA-PFIZER INC-2012285484

PATIENT
  Age: 81 Year
  Sex: Female

DRUGS (6)
  1. PANTOLOC [Suspect]
     Dosage: UNK
     Dates: end: 2012
  2. PANTOLOC [Suspect]
     Dosage: UNK
     Dates: start: 20121103
  3. JAKAFI [Suspect]
     Indication: MYELOFIBROSIS
     Dosage: 6 DF, DAILY
     Dates: start: 201201, end: 2012
  4. JAKAFI [Suspect]
     Dosage: 3 DF, DAILY
     Route: 048
     Dates: start: 2012, end: 2012
  5. JAKAFI [Suspect]
     Dosage: 15 MG, DAILY
     Route: 048
     Dates: start: 201210
  6. JAKAFI [Suspect]
     Dosage: 5 MG, 2X/DAY
     Route: 048

REACTIONS (11)
  - Cerebrovascular accident [Unknown]
  - Blindness [Not Recovered/Not Resolved]
  - Hypertension [Unknown]
  - Anaemia [Unknown]
  - Haemoglobin decreased [Recovered/Resolved]
  - Fatigue [Unknown]
  - Herpes zoster [Unknown]
  - Dyspepsia [Unknown]
  - Constipation [Unknown]
  - Diarrhoea [Recovered/Resolved]
  - Aphonia [Not Recovered/Not Resolved]
